FAERS Safety Report 8802689 (Version 3)
Quarter: 2012Q4

REPORT INFORMATION
  Report Type: 
  Country: US (occurrence: US)
  Receive Date: 20120921
  Receipt Date: 20121023
  Transmission Date: 20130627
  Serious: Yes (Other)
  Sender: FDA-Public Use
  Company Number: US-PFIZER INC-2012230280

PATIENT
  Age: 85 Year
  Sex: Female
  Weight: 58.96 kg

DRUGS (7)
  1. XALATAN [Suspect]
     Indication: GLAUCOMA
     Dosage: one drop in each eye, 1x/day
     Route: 047
     Dates: end: 2012
  2. XALATAN [Suspect]
     Dosage: UNK
     Dates: end: 2012
  3. TIMOLOL [Suspect]
     Indication: GLAUCOMA
     Dosage: 1 Gtt, daily
     Dates: start: 2012
  4. TRAVOPROST [Suspect]
     Indication: GLAUCOMA
     Dosage: 1 Gtt, daily
     Dates: start: 2012, end: 201210
  5. COREG [Concomitant]
     Indication: CARDIAC DISORDER
     Dosage: 0.25 mg, 2x/day
  6. COREG [Concomitant]
     Indication: HYPERTENSION
  7. ATACAND [Concomitant]
     Dosage: 16 mg, 1x/day

REACTIONS (12)
  - Drug ineffective [Unknown]
  - Visual impairment [Unknown]
  - Intraocular pressure increased [Unknown]
  - Vision blurred [Unknown]
  - Hip fracture [Unknown]
  - Walking aid user [Unknown]
  - Ocular hyperaemia [Unknown]
  - Eye irritation [Unknown]
  - Lacrimation increased [Unknown]
  - Eye oedema [Unknown]
  - Dry eye [Unknown]
  - Erythema [Unknown]
